FAERS Safety Report 5746050-4 (Version None)
Quarter: 2008Q2

REPORT INFORMATION
  Report Type: 
  Country: None (occurrence: None)
  Receive Date: 20080522
  Receipt Date: 20080513
  Transmission Date: 20081010
  Serious: Yes (Other)
  Sender: FDA-Public Use
  Company Number: US-JNJFOC-20080503064

PATIENT

DRUGS (1)
  1. REMICADE [Suspect]
     Indication: DRUG USE FOR UNKNOWN INDICATION
     Dosage: ON INFLIXIMAB FOR 18 MOS.
     Route: 042

REACTIONS (1)
  - TUBERCULOSIS [None]
